FAERS Safety Report 8691402 (Version 8)
Quarter: 2013Q3

REPORT INFORMATION
  Report Type: Report from Study
  Country: GB (occurrence: GB)
  Receive Date: 20120730
  Receipt Date: 20130822
  Transmission Date: 20140515
  Serious: Yes (Life-Threatening, Hospitalization, Other)
  Sender: FDA-Public Use
  Company Number: GB-MPIJNJ-2012-04307

PATIENT
  Sex: 0

DRUGS (15)
  1. VELCADE [Suspect]
     Indication: B-CELL LYMPHOMA
     Dosage: 2.3 MG, UNK
     Route: 065
     Dates: start: 20120530, end: 20120608
  2. RITUXIMAB [Suspect]
     Indication: B-CELL LYMPHOMA
     Dosage: 670 MG, UNK
     Route: 065
     Dates: start: 20120511, end: 20120530
  3. CYCLOPHOSPHAMIDE [Suspect]
     Indication: B-CELL LYMPHOMA
     Dosage: 1340 MG, UNK
     Route: 065
     Dates: start: 20120511, end: 20120530
  4. VINCRISTINE [Suspect]
     Indication: B-CELL LYMPHOMA
     Dosage: 2 MG, UNK
     Route: 065
     Dates: start: 20120511, end: 20120530
  5. DOXORUBICIN [Suspect]
     Indication: B-CELL LYMPHOMA
     Dosage: 90 MG, UNK
     Route: 065
     Dates: start: 20120511, end: 20120530
  6. PREDNISOLONE [Suspect]
     Indication: B-CELL LYMPHOMA
     Dosage: 100 MG, UNK
     Route: 065
     Dates: start: 20120511, end: 20120604
  7. ACICLOVIR [Concomitant]
     Indication: ANTIVIRAL PROPHYLAXIS
     Dosage: 400 MG, TID
     Route: 048
  8. OMEPRAZOLE [Concomitant]
     Dosage: 40 MG, QD
     Route: 048
  9. ALLOPURINOL [Concomitant]
     Indication: TUMOUR LYSIS SYNDROME
     Dosage: 300 MG, QD
     Route: 048
  10. AMITRIPTYLINE [Concomitant]
     Indication: ANXIETY
     Dosage: 50 MG, QD
     Route: 048
  11. AMITRIPTYLINE [Concomitant]
     Dosage: 25 MG, UNK
     Route: 048
  12. METOCLOPRAMIDE [Concomitant]
     Dosage: 10 MG, UNK
     Route: 048
  13. METOCLOPRAMIDE [Concomitant]
     Dosage: 20 MG, UNK
     Route: 048
  14. CYCLIZINE [Concomitant]
     Dosage: 50 MG, UNK
     Route: 048
     Dates: start: 20120606
  15. DOMPERIDONE [Concomitant]
     Dosage: UNK
     Route: 048
     Dates: start: 20120606

REACTIONS (2)
  - Small intestinal obstruction [Recovered/Resolved]
  - Vomiting [Recovered/Resolved]
